FAERS Safety Report 10415421 (Version 2)
Quarter: 2014Q4

REPORT INFORMATION
  Report Type: Spontaneous
  Country: US (occurrence: US)
  Receive Date: 20140828
  Receipt Date: 20141016
  Transmission Date: 20150528
  Serious: No
  Sender: FDA-Public Use
  Company Number: US-ASTRAZENECA-2014SE62227

PATIENT
  Age: 59 Year
  Sex: Female
  Weight: 75.8 kg

DRUGS (1)
  1. PULMICORT FLEXHALER [Suspect]
     Active Substance: BUDESONIDE
     Indication: ASTHMA
     Dosage: 2 PUFFS, TWO TIMES A DAY
     Route: 055

REACTIONS (2)
  - Sensation of foreign body [Unknown]
  - Adverse event [Unknown]

NARRATIVE: CASE EVENT DATE: 20140819
